FAERS Safety Report 5106381-8 (Version None)
Quarter: 2006Q3

REPORT INFORMATION
  Report Type: 
  Country: None (occurrence: None)
  Receive Date: 20060918
  Receipt Date: 20060908
  Transmission Date: 20061208
  Serious: Yes (Hospitalization)
  Sender: FDA-Public Use
  Company Number: PHNR2006AU01209

PATIENT

DRUGS (1)
  1. TEGRETOL [Suspect]
     Indication: OTITIS MEDIA
     Dosage: 1 TABLET

REACTIONS (3)
  - ARTHRALGIA [None]
  - DIZZINESS [None]
  - PAIN IN EXTREMITY [None]
